FAERS Safety Report 8363126-6 (Version None)
Quarter: 2012Q1

REPORT INFORMATION
  Report Type: 
  Country: None (occurrence: None)
  Receive Date: 20120323
  Receipt Date: 20110607
  Transmission Date: 20120608
  Serious: Yes (Life-Threatening, Hospitalization)
  Sender: FDA-Public Use
  Company Number: 163-21880-11052109

PATIENT
  Age: 76 Year
  Sex: Female

DRUGS (13)
  1. REVLIMID [Suspect]
     Indication: MULTIPLE MYELOMA
     Dosage: 25 MG, D 1-21 EVERY 28 D, PO, 10 MG, 21/28 DAYS, PO
     Route: 048
     Dates: start: 20101208, end: 20101215
  2. REVLIMID [Suspect]
     Indication: MULTIPLE MYELOMA
     Dosage: 25 MG, D 1-21 EVERY 28 D, PO, 10 MG, 21/28 DAYS, PO
     Route: 048
     Dates: start: 20110412
  3. HCTZ/TRIM (DYAZIDE) [Concomitant]
  4. POTASSIUM CHLORIDE [Concomitant]
  5. VELCADE [Concomitant]
  6. COMBIVENT [Concomitant]
  7. COLACE (DOCUSATE SODIUM) [Concomitant]
  8. LEVOTHYROID (LEVOTHYROXINE) [Concomitant]
  9. LASIX [Concomitant]
  10. ZOFRAN [Concomitant]
  11. AMBIEN [Concomitant]
  12. MARINOL [Concomitant]
  13. ZOMETA [Concomitant]

REACTIONS (2)
  - TUMOUR LYSIS SYNDROME [None]
  - DEHYDRATION [None]
